FAERS Safety Report 18350435 (Version 3)
Quarter: 2020Q4

REPORT INFORMATION
  Report Type: Spontaneous
  Country: MX (occurrence: MX)
  Receive Date: 20201006
  Receipt Date: 20201104
  Transmission Date: 20210114
  Serious: Yes (Other)
  Sender: FDA-Public Use
  Company Number: MX-VIIV HEALTHCARE LIMITED-MX2020AMR180665

PATIENT
  Age: 28 Year
  Sex: Female
  Weight: 101 kg

DRUGS (3)
  1. DOLUTEGRAVIR [Suspect]
     Active Substance: DOLUTEGRAVIR
     Indication: HIV INFECTION
     Dosage: UNK
     Dates: start: 20200821
  2. TENOFOVIR DISOPROXIL FUMARATE. [Suspect]
     Active Substance: TENOFOVIR DISOPROXIL FUMARATE
     Indication: HIV INFECTION
     Dosage: UNK
  3. FTC [Suspect]
     Active Substance: EMTRICITABINE
     Indication: HIV INFECTION
     Dosage: UNK

REACTIONS (7)
  - Sexually transmitted disease [Unknown]
  - Patient isolation [Unknown]
  - Live birth [Unknown]
  - Coronavirus infection [Unknown]
  - Cervicitis [Unknown]
  - Exposure during pregnancy [Unknown]
  - Gestational diabetes [Unknown]

NARRATIVE: CASE EVENT DATE: 20200904
